FAERS Safety Report 8823025 (Version 2)
Quarter: 2013Q1

REPORT INFORMATION
  Report Type: Report from Study
  Country: CA (occurrence: CA)
  Receive Date: 20121003
  Receipt Date: 20130129
  Transmission Date: 20140127
  Serious: Yes (Other)
  Sender: FDA-Public Use
  Company Number: CA-ROCHE-1140632

PATIENT
  Sex: Female
  Weight: 83.99 kg

DRUGS (9)
  1. ACTEMRA [Suspect]
     Indication: RHEUMATOID ARTHRITIS
     Route: 042
     Dates: start: 20111229
  2. ARTHROTEC [Concomitant]
  3. ARAVA [Concomitant]
  4. LYRICA [Concomitant]
  5. MORPHINE [Concomitant]
  6. DICLECTIN [Concomitant]
  7. PRAMIPEXOLE [Concomitant]
     Indication: PREMENSTRUAL SYNDROME
  8. DEMEROL [Concomitant]
  9. PROCHLORPERAZINE [Concomitant]

REACTIONS (2)
  - Menorrhagia [Not Recovered/Not Resolved]
  - Alopecia [Not Recovered/Not Resolved]
